FAERS Safety Report 6706244-8 (Version None)
Quarter: 2010Q2

REPORT INFORMATION
  Report Type: 
  Country: None (occurrence: None)
  Receive Date: 20100503
  Receipt Date: 20100421
  Transmission Date: 20101027
  Serious: Yes (Other)
  Sender: FDA-Public Use
  Company Number: NL-PFIZER INC-2010046923

PATIENT
  Age: 9 Year
  Sex: Male
  Weight: 34 kg

DRUGS (5)
  1. GENOTROPIN [Suspect]
     Indication: GROWTH RETARDATION
     Dosage: 0.8 ML, 1X/DAY
     Route: 058
     Dates: start: 20100402
  2. THYRAX [Concomitant]
     Indication: THYROID DISORDER
     Dosage: 50 MG, 1X/DAY
     Route: 048
     Dates: start: 20090501
  3. HYDROCORTISONE [Concomitant]
     Indication: STRESS
     Dosage: 5 MG, 3X/DAY
     Route: 048
     Dates: start: 20090501
  4. DEPAKIN [Concomitant]
     Indication: EPILEPSY
     Dosage: 300 MG, 2X/DAY
     Route: 048
     Dates: start: 20090501
  5. MINRIN [Concomitant]
     Indication: FLUID IMBALANCE
     Dosage: 5 UG, 1X/DAY
     Route: 045
     Dates: start: 20090501

REACTIONS (1)
  - DEVICE RELATED INFECTION [None]
